FAERS Safety Report 7820788-7 (Version None)
Quarter: 2011Q4

REPORT INFORMATION
  Report Type: 
  Country: None (occurrence: None)
  Receive Date: 20111018
  Receipt Date: 20111014
  Transmission Date: 20120403
  Serious: Yes (Other)
  Sender: FDA-Public Use
  Company Number: US-MERCK-1110USA01862

PATIENT
  Age: 87 Year
  Sex: Female

DRUGS (2)
  1. FOSAMAX [Suspect]
     Route: 048
  2. ACTONEL [Concomitant]
     Route: 065

REACTIONS (4)
  - MALAISE [None]
  - QUALITY OF LIFE DECREASED [None]
  - ARTHROPATHY [None]
  - FEELING ABNORMAL [None]
